FAERS Safety Report 7160536-X (Version None)
Quarter: 2010Q4

REPORT INFORMATION
  Report Type: 
  Country: None (occurrence: None)
  Receive Date: 20101214
  Receipt Date: 20091211
  Transmission Date: 20110411
  Serious: No
  Sender: FDA-Public Use
  Company Number: US-AMGEN-TCS376406

PATIENT

DRUGS (3)
  1. ENBREL [Suspect]
     Indication: RHEUMATOID ARTHRITIS
     Dosage: 50 MG, QWK
     Route: 058
     Dates: start: 20050316
  2. METHOTREXATE [Concomitant]
     Dosage: 15 MG, QWK
     Dates: start: 19960101
  3. COD-LIVER OIL [Concomitant]

REACTIONS (2)
  - INCREASED TENDENCY TO BRUISE [None]
  - TOOTH INFECTION [None]
